FAERS Safety Report 20056851 (Version 1)
Quarter: 2021Q4

REPORT INFORMATION
  Report Type: Spontaneous
  Country: ES (occurrence: ES)
  Receive Date: 20211111
  Receipt Date: 20211111
  Transmission Date: 20220303
  Serious: Yes (Hospitalization, Other)
  Sender: FDA-Public Use
  Company Number: ES-ALXN-A202104844

PATIENT
  Age: 22 Year
  Sex: Female
  Weight: 35 kg

DRUGS (4)
  1. SOLIRIS [Suspect]
     Active Substance: ECULIZUMAB
     Indication: Atypical haemolytic uraemic syndrome
     Dosage: UNK
     Route: 065
     Dates: start: 2020
  2. SOLIRIS [Suspect]
     Active Substance: ECULIZUMAB
     Dosage: 900 MG, Q2W
     Route: 065
     Dates: start: 202012
  3. SOLIRIS [Suspect]
     Active Substance: ECULIZUMAB
     Dosage: 1200 MG , SINGLE
     Route: 065
     Dates: start: 2021
  4. SOLIRIS [Suspect]
     Active Substance: ECULIZUMAB
     Dosage: 1200 MG, Q2W
     Route: 065

REACTIONS (9)
  - Posterior reversible encephalopathy syndrome [Unknown]
  - Thrombocytopenia [Unknown]
  - Haptoglobin decreased [Unknown]
  - Nephrectomy [Unknown]
  - Renal artery embolisation [Unknown]
  - Drug ineffective [Unknown]
  - Decreased immune responsiveness [Unknown]
  - Complement factor increased [Unknown]
  - Hypertension [Unknown]

NARRATIVE: CASE EVENT DATE: 20210601
